FAERS Safety Report 10259612 (Version 1)
Quarter: 2014Q2

REPORT INFORMATION
  Report Type: Spontaneous
  Country: IT (occurrence: IT)
  Receive Date: 20140625
  Receipt Date: 20140625
  Transmission Date: 20141212
  Serious: Yes (Hospitalization)
  Sender: FDA-Public Use
  Company Number: IT-WATSON-2014-13688

PATIENT
  Age: 35 Year
  Sex: Male

DRUGS (2)
  1. ANTABUSE [Suspect]
     Indication: ALCOHOLISM
     Dosage: 400 MG, DAILY
     Route: 048
  2. DIAZEPAM (UNKNOWN) [Suspect]
     Indication: INSOMNIA
     Dosage: 40 GTT DROP(S), TOTAL
     Route: 048
     Dates: start: 20131213, end: 20131213

REACTIONS (3)
  - Confusional state [Recovered/Resolved]
  - Headache [Recovered/Resolved]
  - Insomnia [Recovered/Resolved]
